FAERS Safety Report 5766048-X (Version None)
Quarter: 2008Q2

REPORT INFORMATION
  Report Type: 
  Country: None (occurrence: None)
  Receive Date: 20080611
  Receipt Date: 20080603
  Transmission Date: 20081010
  Serious: Yes (Hospitalization)
  Sender: FDA-Public Use
  Company Number: BR-AVENTIS-200815296GDDC

PATIENT
  Sex: Female
  Weight: 78 kg

DRUGS (10)
  1. LANTUS [Suspect]
     Route: 058
     Dates: start: 20070101
  2. LANTUS [Suspect]
     Route: 058
  3. LANTUS [Suspect]
     Route: 058
  4. OPTIPEN (INSULIN PUMP) [Suspect]
     Dates: start: 20070101
  5. EUTHYROX [Concomitant]
     Indication: HYPOTHYROIDISM
     Route: 048
     Dates: start: 20050101
  6. VALTRIAN [Concomitant]
     Indication: BLOOD PRESSURE
     Dosage: DOSE QUANTITY: 100
     Dates: start: 20070101
  7. CARDIOVASCULAR SYSTEM DRUGS [Concomitant]
     Indication: BLOOD PRESSURE
     Dates: start: 20070101
  8. CARDIOVASCULAR SYSTEM DRUGS [Concomitant]
     Dates: start: 20070101
  9. LASIX [Concomitant]
     Dosage: DOSE QUANTITY: 1
     Route: 048
  10. CAPILAREMA [Concomitant]
     Dosage: DOSE QUANTITY: 3
     Route: 048
     Dates: start: 20080401, end: 20080601

REACTIONS (6)
  - BLOOD GLUCOSE INCREASED [None]
  - HYPERHIDROSIS [None]
  - HYPOGLYCAEMIA [None]
  - RENAL DISORDER [None]
  - RETINOPATHY [None]
  - SOMNOLENCE [None]
